FAERS Safety Report 7773188-2 (Version None)
Quarter: 2011Q3

REPORT INFORMATION
  Report Type: 
  Country: None (occurrence: None)
  Receive Date: 20110921
  Receipt Date: 20110921
  Transmission Date: 20111222
  Serious: No
  Sender: FDA-Public Use
  Company Number: None

PATIENT
  Age: 66 Year
  Sex: Male
  Weight: 82.4 kg

DRUGS (1)
  1. BUDESONIDE/FORMOTEROL [Suspect]
     Indication: ASTHMA
     Dosage: 2 PUFF(S) BID INHALE
     Route: 055
     Dates: start: 20110902, end: 20110914

REACTIONS (3)
  - ABDOMINAL PAIN [None]
  - VOMITING [None]
  - NAUSEA [None]
